FAERS Safety Report 4639477-5 (Version None)
Quarter: 2005Q2

REPORT INFORMATION
  Report Type: 
  Country: None (occurrence: None)
  Receive Date: 20050418
  Receipt Date: 20050405
  Transmission Date: 20051028
  Serious: Yes (Other)
  Sender: FDA-Public Use
  Company Number: GBWYE370525JAN05

PATIENT
  Age: 77 Year
  Sex: Male

DRUGS (19)
  1. TAZOCIN (PIPERACILLIN/TAZOBACTAM, INJECTION) [Suspect]
     Indication: ENTEROCOCCAL INFECTION
     Dosage: SEE IMAGE
     Route: 042
     Dates: start: 20041231, end: 20050104
  2. TAZOCIN (PIPERACILLIN/TAZOBACTAM, INJECTION) [Suspect]
     Indication: GASTROINTESTINAL NECROSIS
     Dosage: SEE IMAGE
     Route: 042
     Dates: start: 20041231, end: 20050104
  3. TAZOCIN (PIPERACILLIN/TAZOBACTAM, INJECTION) [Suspect]
     Indication: PERITONITIS
     Dosage: SEE IMAGE
     Route: 042
     Dates: start: 20041231, end: 20050104
  4. TAZOCIN (PIPERACILLIN/TAZOBACTAM, INJECTION) [Suspect]
     Indication: ENTEROCOCCAL INFECTION
     Dosage: SEE IMAGE
     Route: 042
     Dates: start: 20050107, end: 20050117
  5. TAZOCIN (PIPERACILLIN/TAZOBACTAM, INJECTION) [Suspect]
     Indication: GASTROINTESTINAL NECROSIS
     Dosage: SEE IMAGE
     Route: 042
     Dates: start: 20050107, end: 20050117
  6. TAZOCIN (PIPERACILLIN/TAZOBACTAM, INJECTION) [Suspect]
     Indication: PERITONITIS
     Dosage: SEE IMAGE
     Route: 042
     Dates: start: 20050107, end: 20050117
  7. LANSOPRAZOLE (LANSOPRAZOLE, CAPSULE, DELAYED RELEASE, 0) [Suspect]
     Indication: PROPHYLAXIS
     Dosage: 30 MG 1X PER 1 DAY ORAL
     Route: 048
     Dates: start: 20050127, end: 20050201
  8. PANTOPRAZOLE, PANTOPRAZOLE, , 0) [Suspect]
     Indication: PROPHYLAXIS
     Dosage: 40 MG 1X PER 1 DAY INTRAVENOUS
     Route: 042
     Dates: start: 20050102, end: 20050127
  9. ZYVOX [Concomitant]
  10. FLUCLOXACILLIN (FLUCLOXACILLIN) [Concomitant]
  11. TEICOPLANIN (TEICOPLANIN) [Concomitant]
  12. AMIODARONE HCL [Concomitant]
  13. HEPARIN [Concomitant]
  14. PROPOFOL [Concomitant]
  15. ALFENTANIL [Concomitant]
  16. FUROSEMIDE [Concomitant]
  17. INSULIN [Concomitant]
  18. NORADRENALINE (NORADRENALINE) [Concomitant]
  19. METOCLOPRAMIDE [Concomitant]

REACTIONS (8)
  - ALANINE AMINOTRANSFERASE INCREASED [None]
  - BLOOD ALKALINE PHOSPHATASE INCREASED [None]
  - BLOOD BILIRUBIN INCREASED [None]
  - CONDITION AGGRAVATED [None]
  - HEPATIC FUNCTION ABNORMAL [None]
  - HEPATIC LESION [None]
  - INTERNATIONAL NORMALISED RATIO DECREASED [None]
  - JAUNDICE CHOLESTATIC [None]
